FAERS Safety Report 23135003 (Version 4)
Quarter: 2024Q1

REPORT INFORMATION
  Report Type: Report from Study
  Country: US (occurrence: US)
  Receive Date: 20231101
  Receipt Date: 20240102
  Transmission Date: 20240410
  Serious: Yes (Hospitalization, Other)
  Sender: FDA-Public Use
  Company Number: US-ABBVIE-5474694

PATIENT
  Age: 43 Year
  Sex: Female
  Weight: 105.23 kg

DRUGS (10)
  1. RINVOQ [Suspect]
     Active Substance: UPADACITINIB
     Indication: Dermatitis atopic
     Dosage: FORM STRENGTH: 15 MILLIGRAM
     Route: 048
     Dates: start: 202206, end: 20221101
  2. RINVOQ [Suspect]
     Active Substance: UPADACITINIB
     Indication: Dermatitis atopic
     Dosage: FORM STRENGTH: 15 MILLIGRAM
     Route: 048
     Dates: start: 20230422
  3. XANAX [Concomitant]
     Active Substance: ALPRAZOLAM
     Indication: Product used for unknown indication
     Dosage: AS NEEDED
  4. BUPROPION [Concomitant]
     Active Substance: BUPROPION
     Indication: Depression
  5. METOPROLOL [Concomitant]
     Active Substance: METOPROLOL
     Indication: Hypertension
  6. DULOXETINE [Concomitant]
     Active Substance: DULOXETINE
     Indication: Product used for unknown indication
  7. SPIRONOLACTONE [Concomitant]
     Active Substance: SPIRONOLACTONE
     Indication: Product used for unknown indication
  8. MOMETASONE [Concomitant]
     Active Substance: MOMETASONE
     Indication: Hypersensitivity
  9. MONTELUKAST [Concomitant]
     Active Substance: MONTELUKAST SODIUM
     Indication: Polycystic ovarian syndrome
  10. FLUOXETINE [Concomitant]
     Active Substance: FLUOXETINE HYDROCHLORIDE
     Indication: Depression

REACTIONS (9)
  - Back pain [Recovering/Resolving]
  - Bone abscess [Recovering/Resolving]
  - Spinal column injury [Recovering/Resolving]
  - Osteomyelitis [Recovering/Resolving]
  - Illness [Unknown]
  - Myelitis [Recovering/Resolving]
  - Muscle atrophy [Recovering/Resolving]
  - Spinal disorder [Recovered/Resolved]
  - Spondylitis [Recovered/Resolved]

NARRATIVE: CASE EVENT DATE: 20230415
